FAERS Safety Report 26176218 (Version 2)
Quarter: 2025Q4

REPORT INFORMATION
  Report Type: Spontaneous
  Country: EU (occurrence: EU)
  Receive Date: 20251218
  Receipt Date: 20251222
  Transmission Date: 20260118
  Serious: Yes (Hospitalization, Other)
  Sender: PFIZER
  Company Number: EU-SANDOZ-SDZ2025DE092400

PATIENT
  Sex: Male

DRUGS (9)
  1. ENBREL [Suspect]
     Active Substance: ETANERCEPT
     Dosage: 50 MG
     Route: 065
     Dates: start: 20190805, end: 20191028
  2. METHOTREXATE SODIUM [Suspect]
     Active Substance: METHOTREXATE SODIUM
     Dosage: 10 MG
     Route: 058
     Dates: start: 20201012, end: 20210111
  3. HYRIMOZ [Suspect]
     Active Substance: ADALIMUMAB-ADAZ
     Dosage: 40 MG
     Route: 065
     Dates: start: 20250211
  4. COSENTYX [Suspect]
     Active Substance: SECUKINUMAB
     Dosage: 150 MG
     Route: 065
     Dates: start: 20240420, end: 20250122
  5. ETANERCEPT [Suspect]
     Active Substance: ETANERCEPT
     Dosage: 50 MG
     Route: 065
     Dates: start: 20191028, end: 20230407
  6. ETANERCEPT [Suspect]
     Active Substance: ETANERCEPT
     Dosage: 50 MG
     Route: 065
     Dates: start: 20231116, end: 20231128
  7. IBUPROFEN [Suspect]
     Active Substance: IBUPROFEN
     Dosage: 300 MG
     Route: 065
     Dates: start: 20200701
  8. IBUPROFEN [Suspect]
     Active Substance: IBUPROFEN
     Dosage: 600 MG
     Route: 065
     Dates: start: 20200701, end: 20250604
  9. IMRALDI [Suspect]
     Active Substance: ADALIMUMAB
     Dosage: 40 MG
     Route: 065
     Dates: start: 20230726, end: 20231018

REACTIONS (2)
  - Thymoma malignant [Unknown]
  - Off label use [Unknown]

NARRATIVE: CASE EVENT DATE: 20201012
